FAERS Safety Report 6842279-2 (Version None)
Quarter: 2010Q3

REPORT INFORMATION
  Report Type: 
  Country: None (occurrence: None)
  Receive Date: 20100714
  Receipt Date: 20070724
  Transmission Date: 20110219
  Serious: No
  Sender: FDA-Public Use
  Company Number: US-PFIZER INC-2007062572

PATIENT
  Sex: Female
  Weight: 55.5 kg

DRUGS (7)
  1. CHANTIX [Suspect]
     Indication: SMOKING CESSATION THERAPY
     Dates: start: 20070501
  2. ROBAXIN [Concomitant]
  3. VITAMINS [Concomitant]
  4. CLONAZEPAM [Concomitant]
  5. CELEXA [Concomitant]
  6. ALLEGRA [Concomitant]
  7. DRUG, UNSPECIFIED [Concomitant]

REACTIONS (3)
  - HEADACHE [None]
  - NAUSEA [None]
  - VOMITING [None]
